FAERS Safety Report 21764845 (Version 2)
Quarter: 2022Q4

REPORT INFORMATION
  Report Type: Report from Study
  Country: US (occurrence: US)
  Receive Date: 20221222
  Receipt Date: 20221227
  Transmission Date: 20230113
  Serious: No
  Sender: FDA-Public Use
  Company Number: US-002147023-NVSC2022US294199

PATIENT
  Age: 70 Year
  Sex: Female

DRUGS (1)
  1. LEQVIO [Suspect]
     Active Substance: INCLISIRAN SODIUM
     Indication: Product used for unknown indication
     Dosage: UNK
     Route: 058
     Dates: start: 20221201

REACTIONS (4)
  - Hypertension [Unknown]
  - Anxiety [Unknown]
  - Vulvovaginal rash [Recovering/Resolving]
  - Labia enlarged [Unknown]

NARRATIVE: CASE EVENT DATE: 20221203
